FAERS Safety Report 17765965 (Version 2)
Quarter: 2020Q2

REPORT INFORMATION
  Report Type: Spontaneous
  Country: US (occurrence: US)
  Receive Date: 20200511
  Receipt Date: 20200604
  Transmission Date: 20200714
  Serious: No
  Sender: FDA-Public Use
  Company Number: US-GW PHARMA-202004USGW01639

PATIENT

DRUGS (1)
  1. EPIDIOLEX [Suspect]
     Active Substance: CANNABIDIOL
     Indication: LENNOX-GASTAUT SYNDROME
     Dosage: 140 MILLIGRAM, BID
     Route: 048
     Dates: start: 20191219, end: 202003

REACTIONS (3)
  - Decreased appetite [Unknown]
  - Lethargy [Unknown]
  - Diarrhoea [Unknown]

NARRATIVE: CASE EVENT DATE: 202003
